FAERS Safety Report 19561125 (Version 1)
Quarter: 2021Q3

REPORT INFORMATION
  Report Type: Report from Study
  Country: PE (occurrence: PE)
  Receive Date: 20210715
  Receipt Date: 20210715
  Transmission Date: 20211014
  Serious: Yes (Other)
  Sender: FDA-Public Use
  Company Number: PE-SEATTLE GENETICS-2021SGN02562

PATIENT
  Sex: Female

DRUGS (2)
  1. COVID?19 VACCINE [Concomitant]
     Dosage: UNK
     Dates: start: 20210612
  2. BRENTUXIMAB VEDOTIN [Suspect]
     Active Substance: BRENTUXIMAB VEDOTIN
     Indication: HODGKIN^S DISEASE
     Dosage: 84 MILLIGRAM, Q3WEEKS
     Route: 042
     Dates: start: 20200923

REACTIONS (4)
  - Constipation [Unknown]
  - Transaminases increased [Unknown]
  - Feeling abnormal [Unknown]
  - Hodgkin^s disease [Unknown]
